FAERS Safety Report 5806573-6 (Version None)
Quarter: 2008Q3

REPORT INFORMATION
  Report Type: 
  Country: None (occurrence: None)
  Receive Date: 20080710
  Receipt Date: 20080625
  Transmission Date: 20090109
  Serious: Yes (Other)
  Sender: FDA-Public Use
  Company Number: GB-GENENTECH-263445

PATIENT
  Age: 27 Year
  Sex: Female

DRUGS (2)
  1. XOLAIR [Suspect]
     Indication: ASTHMA
     Dosage: 300 MG, 2/WEEK
     Route: 058
     Dates: start: 20080108
  2. VENTOLIN [Concomitant]
     Indication: DRUG USE FOR UNKNOWN INDICATION

REACTIONS (2)
  - ERYTHEMA [None]
  - OEDEMA PERIPHERAL [None]
